FAERS Safety Report 7474011-6 (Version None)
Quarter: 2011Q2

REPORT INFORMATION
  Report Type: 
  Country: None (occurrence: None)
  Receive Date: 20110511
  Receipt Date: 20100108
  Transmission Date: 20111010
  Serious: Yes (Death, Hospitalization, Other)
  Sender: FDA-Public Use
  Company Number: US-BAYER-201010449NA

PATIENT
  Age: 58 Year
  Sex: Female
  Weight: 64 kg

DRUGS (9)
  1. PROTAMINE SULFATE [Concomitant]
     Dosage: 900 MG TOTAL
     Route: 042
     Dates: start: 20030428
  2. TRASYLOL [Suspect]
     Dosage: LOADING DOSE OF 200 ML OVER 30 MINUTES, THEN 50 ML/HR
     Route: 042
     Dates: start: 20030428, end: 20030428
  3. HEPARIN [Concomitant]
     Dosage: UNK
     Route: 042
     Dates: start: 20030428
  4. INOCOR [Concomitant]
     Dosage: UNK
     Route: 042
     Dates: start: 20030428
  5. ATENOLOL [Concomitant]
     Indication: HYPERTENSION
     Dosage: 100 MG, QD
     Route: 048
     Dates: start: 19900101
  6. TRASYLOL [Suspect]
     Indication: CORONARY ARTERY BYPASS
     Dosage: INITIAL (TEST) DOSE OF 1ML
     Route: 042
     Dates: start: 20030428, end: 20030428
  7. PRAVACHOL [Concomitant]
     Dosage: 20 MG, HS
     Route: 048
     Dates: start: 19900101
  8. ACETYLSALICYLIC ACID SRT [Concomitant]
     Route: 048
  9. AMILORID/HCTZ [Concomitant]
     Indication: DIURETIC THERAPY
     Dosage: 5/50 MG DAILY
     Route: 048

REACTIONS (14)
  - RENAL FAILURE ACUTE [None]
  - DEATH [None]
  - STRESS [None]
  - RENAL INJURY [None]
  - EMOTIONAL DISTRESS [None]
  - ANXIETY [None]
  - UNEVALUABLE EVENT [None]
  - FEAR [None]
  - PAIN [None]
  - ANHEDONIA [None]
  - MULTI-ORGAN FAILURE [None]
  - RENAL IMPAIRMENT [None]
  - INJURY [None]
  - RENAL FAILURE [None]
